FAERS Safety Report 21248415 (Version 2)
Quarter: 2022Q3

REPORT INFORMATION
  Report Type: Report from Study
  Country: GB (occurrence: GB)
  Receive Date: 20220824
  Receipt Date: 20220826
  Transmission Date: 20221027
  Serious: Yes (Other)
  Sender: FDA-Public Use
  Company Number: GB-BRISTOL-MYERS SQUIBB COMPANY-BMS-2020-110468

PATIENT
  Age: 53 Year
  Sex: Female

DRUGS (4)
  1. METHOTREXATE SODIUM [Suspect]
     Active Substance: METHOTREXATE SODIUM
     Dosage: UNK, CYCLIC (ONCE EVERY TWO WEEKS)
     Route: 065
  2. ABATACEPT [Suspect]
     Active Substance: ABATACEPT
     Indication: Rheumatoid arthritis
     Dosage: 125 MG, WEEKLY
     Route: 058
     Dates: start: 2018
  3. ORENCIA [Suspect]
     Active Substance: ABATACEPT
     Indication: Rheumatoid arthritis
     Dosage: 125 MG, WEEKLY
     Route: 058
     Dates: start: 2018
  4. METHOTREXATE SODIUM [Concomitant]
     Active Substance: METHOTREXATE SODIUM
     Dosage: UNK
     Route: 065

REACTIONS (13)
  - Rheumatoid arthritis [Unknown]
  - Gastrointestinal infection [Unknown]
  - Headache [Unknown]
  - Urinary tract infection [Unknown]
  - Diarrhoea [Unknown]
  - Off label use [Unknown]
  - Dyspnoea [Unknown]
  - Intentional product use issue [Unknown]
  - COVID-19 [Unknown]
  - Intentional product use issue [Unknown]
  - Skin infection [Unknown]
  - Product use issue [Unknown]
  - Product dose omission issue [Unknown]
